FAERS Safety Report 19874047 (Version 1)
Quarter: 2021Q3

REPORT INFORMATION
  Report Type: Spontaneous
  Country: IT (occurrence: IT)
  Receive Date: 20210923
  Receipt Date: 20210923
  Transmission Date: 20211014
  Serious: Yes (Death)
  Sender: FDA-Public Use
  Company Number: IT-AMNEAL PHARMACEUTICALS-2021-AMRX-03838

PATIENT
  Sex: Female

DRUGS (2)
  1. LENALIDOMIDE [Suspect]
     Active Substance: LENALIDOMIDE
     Indication: RENAL AMYLOIDOSIS
     Dosage: ON DAYS 1 THROUGH 21 OF EACH 28?DAYS CYCLE
     Route: 048
  2. DEXAMETHASONE SODIUM PHOSPHATE. [Suspect]
     Active Substance: DEXAMETHASONE SODIUM PHOSPHATE
     Indication: RENAL AMYLOIDOSIS
     Dosage: 40 MILLIGRAM
     Route: 065

REACTIONS (1)
  - Breast cancer [Fatal]
